FAERS Safety Report 8836656 (Version 1)
Quarter: 2012Q4

REPORT INFORMATION
  Report Type: Spontaneous
  Country: IT (occurrence: None)
  Receive Date: 20121010
  Receipt Date: 20121010
  Transmission Date: 20130627
  Serious: Yes (Hospitalization)
  Sender: FDA-Public Use
  Company Number: 2012P1060739

PATIENT
  Age: 92 Year
  Sex: Female

DRUGS (8)
  1. LANOXIN [Suspect]
     Indication: CARDIAC FAILURE
     Route: 048
     Dates: start: 20090101, end: 20120924
  2. METFORMIN HYDROCHLORIDE (METFORMINA) [Concomitant]
  3. CITALOPRAM [Concomitant]
  4. WARFARIN SODIUM (COUMADIN) [Concomitant]
  5. BISOPROLOL FUMARATE (CONGESCOR) [Concomitant]
  6. NITROGLYCERINE (NITRODERM) [Concomitant]
  7. SODIUM RABEPRAZOLE (PARIET) [Concomitant]
  8. ENALAPRIL MALEATE (ENAPREN) [Concomitant]

REACTIONS (2)
  - Somnolence [None]
  - Loss of consciousness [None]
